FAERS Safety Report 18502173 (Version 4)
Quarter: 2021Q3

REPORT INFORMATION
  Report Type: Spontaneous
  Country: FI (occurrence: FI)
  Receive Date: 20201113
  Receipt Date: 20210920
  Transmission Date: 20211014
  Serious: Yes (Congenital Anomaly, Other)
  Sender: FDA-Public Use
  Company Number: FI-UCBSA-2020044823

PATIENT

DRUGS (8)
  1. CIMZIA [Suspect]
     Active Substance: CERTOLIZUMAB PEGOL
     Indication: OLIGOARTHRITIS
     Dosage: UNK
     Route: 064
     Dates: start: 20200605, end: 202008
  2. INFLIXIMAB [Suspect]
     Active Substance: INFLIXIMAB
     Indication: OLIGOARTHRITIS
     Dosage: UNK
     Route: 064
     Dates: start: 201906, end: 202004
  3. THYROXIN [Concomitant]
     Active Substance: LEVOTHYROXINE
     Indication: PRODUCT USED FOR UNKNOWN INDICATION
     Route: 064
  4. PREDNISOLON [Concomitant]
     Active Substance: PREDNISOLONE
     Indication: PRODUCT USED FOR UNKNOWN INDICATION
     Dosage: 5 MILLIGRAM, ONCE DAILY (QD)
     Route: 064
  5. OXIKLORIN [Concomitant]
     Active Substance: HYDROXYCHLOROQUINE SULFATE
     Indication: PRODUCT USED FOR UNKNOWN INDICATION
     Dosage: 300 MILLIGRAM, ONCE DAILY (QD)
     Route: 064
  6. FOLIC ACID. [Concomitant]
     Active Substance: FOLIC ACID
     Indication: PRODUCT USED FOR UNKNOWN INDICATION
     Dosage: 5 MILLIGRAM, WEEKLY (QW)
     Route: 064
  7. IMUREL [Concomitant]
     Active Substance: AZATHIOPRINE SODIUM
     Indication: PRODUCT USED FOR UNKNOWN INDICATION
     Dosage: 150 MILLIGRAM, ONCE DAILY (QD)
     Route: 064
  8. METHOTREXATE. [Concomitant]
     Active Substance: METHOTREXATE
     Indication: PRODUCT USED FOR UNKNOWN INDICATION
     Route: 064

REACTIONS (17)
  - Congenital ureteric anomaly [Recovered/Resolved with Sequelae]
  - Congenital intestinal malformation [Recovered/Resolved with Sequelae]
  - Maternal exposure during pregnancy [Unknown]
  - CHARGE syndrome [Recovered/Resolved with Sequelae]
  - Pulmonary malformation [Recovered/Resolved with Sequelae]
  - VACTERL syndrome [Recovered/Resolved with Sequelae]
  - Renal hypoplasia [Recovered/Resolved with Sequelae]
  - Ear malformation [Recovered/Resolved with Sequelae]
  - Ventricular septal defect [Recovered/Resolved with Sequelae]
  - Uterine hypoplasia [Recovered/Resolved with Sequelae]
  - Congenital cardiovascular anomaly [Recovered/Resolved with Sequelae]
  - Anal atresia [Recovered/Resolved with Sequelae]
  - Congenital musculoskeletal anomaly [Recovered/Resolved with Sequelae]
  - Single umbilical artery [Recovered/Resolved with Sequelae]
  - Thrombocytopenia-absent radius syndrome [Recovered/Resolved with Sequelae]
  - Roberts syndrome [Recovered/Resolved with Sequelae]
  - Congenital jaw malformation [Recovered/Resolved with Sequelae]

NARRATIVE: CASE EVENT DATE: 2020
